FAERS Safety Report 9961270 (Version 1)
Quarter: 2014Q1

REPORT INFORMATION
  Report Type: Spontaneous
  Country: US (occurrence: US)
  Receive Date: 20140305
  Receipt Date: 20140305
  Transmission Date: 20141002
  Serious: No
  Sender: FDA-Public Use
  Company Number: US-BAYER-2014-033225

PATIENT
  Age: 64 Year
  Sex: Female

DRUGS (2)
  1. CIPRO [Suspect]
  2. FLONASE [Concomitant]

REACTIONS (8)
  - Anxiety [None]
  - Feeling abnormal [None]
  - Nasal congestion [None]
  - Oropharyngeal pain [None]
  - Abdominal pain upper [None]
  - Pain [None]
  - Lip exfoliation [None]
  - Abdominal pain [None]
